FAERS Safety Report 5016365-6 (Version None)
Quarter: 2006Q2

REPORT INFORMATION
  Report Type: 
  Country: None (occurrence: None)
  Receive Date: 20060425
  Receipt Date: 20051227
  Transmission Date: 20061013
  Serious: Yes (Life-Threatening)
  Sender: FDA-Public Use
  Company Number: 2005-BP-21337BP

PATIENT
  Age: 49 Year
  Sex: Male

DRUGS (4)
  1. APTIVUS [Suspect]
     Indication: HIV INFECTION
     Dosage: SEE TEXT
     Route: 048
     Dates: end: 20051205
  2. RITONAVIR CAPSULES [Suspect]
     Indication: HIV INFECTION
     Dosage: SEE TEXT PO
     Route: 048
     Dates: end: 20051205
  3. TRUVADA [Concomitant]
  4. T-20 (ENFUVIRTIDE) [Concomitant]

REACTIONS (1)
  - HEPATIC ENZYME INCREASED [None]
